FAERS Safety Report 12080341 (Version 1)
Quarter: 2016Q1

REPORT INFORMATION
  Report Type: Spontaneous
  Country: GB (occurrence: GB)
  Receive Date: 20160216
  Receipt Date: 20160216
  Transmission Date: 20160526
  Serious: Yes (Death)
  Sender: FDA-Public Use
  Company Number: GB-SA-2016SA024900

PATIENT
  Age: 69 Year
  Sex: Male

DRUGS (2)
  1. CLEXANE [Suspect]
     Active Substance: ENOXAPARIN SODIUM
     Route: 065
  2. APIXABAN [Suspect]
     Active Substance: APIXABAN
     Route: 065

REACTIONS (1)
  - Death [Fatal]
